FAERS Safety Report 26157566 (Version 1)
Quarter: 2025Q4

REPORT INFORMATION
  Report Type: Report from Study
  Country: CN (occurrence: CN)
  Receive Date: 20251215
  Receipt Date: 20251215
  Transmission Date: 20260117
  Serious: Yes (Hospitalization, Other)
  Sender: ROCHE
  Company Number: CN-ROCHE-10000202165

PATIENT
  Age: 14 Year
  Sex: Male

DRUGS (3)
  1. HEMLIBRA [Suspect]
     Active Substance: EMICIZUMAB-KXWH
     Indication: Factor VIII deficiency
     Route: 058
  2. RITUXIMAB [Suspect]
     Active Substance: RITUXIMAB
     Indication: Product used for unknown indication
     Dates: start: 20170312
  3. SIROLIMUS [Concomitant]
     Active Substance: SIROLIMUS

REACTIONS (7)
  - Haemorrhage [Unknown]
  - Hypokinesia [Unknown]
  - Coagulation test abnormal [Unknown]
  - Blood test abnormal [Unknown]
  - Renal function test abnormal [Unknown]
  - Congenital knee deformity [Unknown]
  - Hyperuricaemia [Unknown]

NARRATIVE: CASE EVENT DATE: 20250125
